FAERS Safety Report 5103883-5 (Version None)
Quarter: 2006Q3

REPORT INFORMATION
  Report Type: 
  Country: None (occurrence: None)
  Receive Date: 20060913
  Receipt Date: 20060901
  Transmission Date: 20061208
  Serious: Yes (Hospitalization)
  Sender: FDA-Public Use
  Company Number: TH-GLAXOSMITHKLINE-B0437595A

PATIENT
  Age: 31 Year
  Sex: Female

DRUGS (5)
  1. LAMOTRIGINE [Suspect]
     Indication: MAJOR DEPRESSION
     Dosage: 25MG PER DAY
     Route: 048
     Dates: start: 20060716, end: 20060817
  2. ENANTONE [Concomitant]
     Route: 042
     Dates: start: 20060817
  3. PROGESTOGEN [Concomitant]
     Route: 048
     Dates: start: 20060818, end: 20060820
  4. RIVOTRIL [Concomitant]
     Route: 065
     Dates: start: 20060716
  5. ZOLOFT [Concomitant]
     Route: 065
     Dates: start: 20060716

REACTIONS (13)
  - EYE PAIN [None]
  - MOUTH ULCERATION [None]
  - PHARYNGOLARYNGEAL PAIN [None]
  - PYREXIA [None]
  - RASH ERYTHEMATOUS [None]
  - RASH MACULAR [None]
  - RASH MORBILLIFORM [None]
  - SKIN DISCOLOURATION [None]
  - SKIN EXFOLIATION [None]
  - SKIN HYPERTROPHY [None]
  - TONGUE ULCERATION [None]
  - TOXIC EPIDERMAL NECROLYSIS [None]
  - URTICARIA [None]
